FAERS Safety Report 7241449-1 (Version None)
Quarter: 2011Q1

REPORT INFORMATION
  Report Type: 
  Country: None (occurrence: None)
  Receive Date: 20110124
  Receipt Date: 20110114
  Transmission Date: 20110831
  Serious: Yes (Other)
  Sender: FDA-Public Use
  Company Number: US-GENZYME-CERZ-1001697

PATIENT
  Sex: Female

DRUGS (5)
  1. SINEMET [Concomitant]
     Indication: PARKINSON'S DISEASE
     Dosage: UNK MG, QID
     Route: 048
  2. DIOVAN [Concomitant]
     Indication: HYPERTENSION
     Dosage: 160 MG, BID
     Route: 048
  3. FOSAMAX [Concomitant]
     Indication: PRODUCT USED FOR UNKNOWN INDICATION
     Dosage: 80 UNK, UNK
     Route: 065
  4. CEREZYME [Suspect]
     Indication: GAUCHER'S DISEASE
     Dosage: UNK
     Route: 042
  5. LIPITOR [Concomitant]
     Indication: PRODUCT USED FOR UNKNOWN INDICATION
     Dosage: 81 MG, QD
     Route: 065

REACTIONS (2)
  - FALL [None]
  - HIP FRACTURE [None]
